FAERS Safety Report 5831994-5 (Version None)
Quarter: 2008Q3

REPORT INFORMATION
  Report Type: 
  Country: None (occurrence: None)
  Receive Date: 20080804
  Receipt Date: 20080725
  Transmission Date: 20090109
  Serious: Yes (Other)
  Sender: FDA-Public Use
  Company Number: CA-AMGEN-QUU297618

PATIENT
  Age: 52 Year
  Sex: Female

DRUGS (7)
  1. NEULASTA [Suspect]
     Indication: CHEMOTHERAPY
     Route: 058
  2. NEUPOGEN [Suspect]
     Indication: CHEMOTHERAPY
  3. ADRIAMYCIN PFS [Suspect]
     Route: 042
  4. CYCLOPHOSPHAMIDE [Concomitant]
  5. DEXAMETHASONE [Concomitant]
  6. ONDANSETRON [Concomitant]
  7. TAXOL [Concomitant]

REACTIONS (7)
  - ERYTHEMA [None]
  - MUCOSAL INFLAMMATION [None]
  - NEUTROPENIA [None]
  - OEDEMA [None]
  - PYREXIA [None]
  - SKIN BURNING SENSATION [None]
  - SKIN EXFOLIATION [None]
